FAERS Safety Report 7003164-9 (Version None)
Quarter: 2010Q3

REPORT INFORMATION
  Report Type: 
  Country: None (occurrence: None)
  Receive Date: 20100920
  Receipt Date: 20100215
  Transmission Date: 20110219
  Serious: No
  Sender: FDA-Public Use
  Company Number: US-ASTRAZENECA-2010SE06610

PATIENT
  Sex: Female
  Weight: 64.9 kg

DRUGS (4)
  1. SEROQUEL [Suspect]
     Indication: INSOMNIA
     Route: 048
     Dates: start: 20100210
  2. MELATONIN [Concomitant]
  3. ADVIL LIQUI-GELS [Concomitant]
  4. PARAFON [Concomitant]

REACTIONS (6)
  - CHEST DISCOMFORT [None]
  - DRUG INEFFECTIVE [None]
  - INSOMNIA [None]
  - MUSCLE SPASMS [None]
  - MYALGIA [None]
  - PANIC ATTACK [None]
